FAERS Safety Report 6929160-5 (Version None)
Quarter: 2010Q3

REPORT INFORMATION
  Report Type: 
  Country: None (occurrence: None)
  Receive Date: 20100817
  Receipt Date: 20100817
  Transmission Date: 20110219
  Serious: Yes (Hospitalization)
  Sender: FDA-Public Use
  Company Number: JP-ELI_LILLY_AND_COMPANY-JP201007000660

PATIENT
  Age: 45 Year
  Sex: Female

DRUGS (2)
  1. GEMZAR [Suspect]
     Indication: GALLBLADDER CANCER NON-RESECTABLE
     Route: 042
  2. CISPLATIN [Concomitant]
     Indication: GALLBLADDER CANCER NON-RESECTABLE
     Route: 042

REACTIONS (2)
  - FEBRILE NEUTROPENIA [None]
  - SEPTIC SHOCK [None]
